FAERS Safety Report 8904948 (Version 1)
Quarter: 2012Q4

REPORT INFORMATION
  Report Type: 
  Country: US (occurrence: US)
  Receive Date: 20121109
  Receipt Date: 20121109
  Transmission Date: 20130627
  Serious: No
  Sender: FDA-Public Use
  Company Number: US-ASTRAZENECA-2012SE83734

PATIENT
  Sex: Male

DRUGS (1)
  1. NEXIUM [Suspect]
     Indication: GASTRITIS
     Route: 048

REACTIONS (8)
  - Dyspepsia [Unknown]
  - Throat irritation [Unknown]
  - Gastritis [Unknown]
  - Feeling of despair [Unknown]
  - Pain [Unknown]
  - Anxiety [Unknown]
  - Gastrin secretion disorder [Unknown]
  - Drug ineffective [Unknown]
